FAERS Safety Report 15584943 (Version 1)
Quarter: 2018Q4

REPORT INFORMATION
  Report Type: Spontaneous
  Country: HR (occurrence: HR)
  Receive Date: 20181105
  Receipt Date: 20181105
  Transmission Date: 20190205
  Serious: Yes (Other)
  Sender: FDA-Public Use
  Company Number: HR-TEVA-2018-HR-971679

PATIENT
  Age: 17 Year
  Sex: Female

DRUGS (2)
  1. VALSACOR [Suspect]
     Active Substance: VALSARTAN
     Dosage: 2240 MILLIGRAM DAILY;
     Route: 048
     Dates: start: 20180820, end: 20180820
  2. ATORVOX TABLETE 40 MG [Suspect]
     Active Substance: ATORVASTATIN
     Dosage: 400 MILLIGRAM DAILY;
     Route: 048
     Dates: start: 20180820, end: 20180820

REACTIONS (3)
  - Intentional overdose [Unknown]
  - No adverse event [Unknown]
  - Suicide attempt [Unknown]

NARRATIVE: CASE EVENT DATE: 20180820
